FAERS Safety Report 4405364-0 (Version None)
Quarter: 2004Q3

REPORT INFORMATION
  Report Type: 
  Country: None (occurrence: None)
  Receive Date: 20040720
  Receipt Date: 20040702
  Transmission Date: 20050211
  Serious: Yes (Other)
  Sender: FDA-Public Use
  Company Number: DSA_24654_2004

PATIENT
  Age: 60 Year
  Sex: Male

DRUGS (3)
  1. RENIVACE [Suspect]
     Indication: HYPERTENSION
     Dosage: 2.5 MG Q DAY PO
     Route: 048
     Dates: start: 20040514
  2. DIOVAN [Suspect]
     Indication: HYPERTENSION
     Dosage: DF PO
     Route: 048
  3. LOSARTAN POTASSIUM [Suspect]
     Dosage: 25 MG Q DAY

REACTIONS (4)
  - BRONCHIOLOALVEOLAR CARCINOMA [None]
  - COUGH [None]
  - DYSPNOEA [None]
  - PULMONARY OEDEMA [None]
